FAERS Safety Report 9177855 (Version 1)
Quarter: 2013Q1

REPORT INFORMATION
  Report Type: Spontaneous
  Country: US (occurrence: US)
  Receive Date: 20130321
  Receipt Date: 20130321
  Transmission Date: 20140127
  Serious: Yes (Hospitalization, Other)
  Sender: FDA-Public Use
  Company Number: US-ASTRAZENECA-2013SE17293

PATIENT
  Age: 69 Year
  Sex: Male

DRUGS (7)
  1. BRILINTA [Suspect]
     Indication: THROMBOLYSIS
     Dosage: LOADING DOSE 180 MG
     Route: 048
  2. BRILINTA [Suspect]
     Indication: THROMBOLYSIS
     Route: 048
  3. PRASUGREL [Concomitant]
     Route: 048
  4. ASPIRIN [Concomitant]
  5. BETA BLOCKER [Concomitant]
  6. STATIN [Concomitant]
  7. ACE INHIBITOR [Concomitant]

REACTIONS (2)
  - Cardiac failure congestive [Recovered/Resolved]
  - Dyspnoea [Recovered/Resolved]
